FAERS Safety Report 7216079-8 (Version None)
Quarter: 2011Q1

REPORT INFORMATION
  Report Type: 
  Country: None (occurrence: None)
  Receive Date: 20110107
  Receipt Date: 20101224
  Transmission Date: 20110831
  Serious: No
  Sender: FDA-Public Use
  Company Number: US-B.I. PHARMACEUTICALS,INC./RIDGEFIELD-2011-BP-00129BP

PATIENT
  Sex: Female

DRUGS (6)
  1. SIMVASTATIN [Concomitant]
     Indication: CARDIAC DISORDER
     Dosage: 40 MG
  2. LISINOPRIL [Concomitant]
     Indication: CARDIAC DISORDER
     Dosage: 10 MG
  3. PREMARIN [Concomitant]
     Indication: CARDIAC DISORDER
     Dosage: 0.3 MG
  4. SOTALOL [Concomitant]
     Indication: CARDIAC DISORDER
     Dosage: 80 MG
  5. PRADAXA [Suspect]
     Indication: ATRIAL FIBRILLATION
     Dosage: 300 MG
     Dates: start: 20101221
  6. DIOXIN [Concomitant]
     Indication: CARDIAC DISORDER
     Dosage: 250 MG
     Route: 048

REACTIONS (2)
  - ABDOMINAL DISCOMFORT [None]
  - CONSTIPATION [None]
